FAERS Safety Report 8582265-8 (Version None)
Quarter: 2012Q3

REPORT INFORMATION
  Report Type: 
  Country: None (occurrence: None)
  Receive Date: 20120809
  Receipt Date: 20120727
  Transmission Date: 20120928
  Serious: Yes (Hospitalization)
  Sender: FDA-Public Use
  Company Number: US-ROCHE-1018042

PATIENT
  Sex: Female

DRUGS (14)
  1. AZATHIOPRINE SODIUM [Concomitant]
     Indication: GASTROOESOPHAGEAL REFLUX DISEASE
  2. PREVACID [Concomitant]
     Route: 048
  3. VITAMIN D [Concomitant]
     Route: 048
  4. CALCIUM [Concomitant]
  5. PREDNISONE TAB [Concomitant]
  6. ASPIRIN [Concomitant]
     Route: 048
  7. REMICADE [Concomitant]
  8. PANTOPRAZOLE [Concomitant]
  9. JANUMET [Concomitant]
     Indication: TYPE 2 DIABETES MELLITUS
  10. JANUVIA [Concomitant]
     Route: 048
  11. BONIVA [Suspect]
     Indication: OSTEOPOROSIS
     Route: 042
     Dates: start: 20090101
  12. IMURAN [Concomitant]
  13. METFORMIN HYDROCHLORIDE [Concomitant]
     Route: 048
  14. DULOXETIME HYDROCHLORIDE [Concomitant]
     Route: 048

REACTIONS (1)
  - HIP FRACTURE [None]
